FAERS Safety Report 10482544 (Version 3)
Quarter: 2014Q4

REPORT INFORMATION
  Report Type: Spontaneous
  Country: JP (occurrence: JP)
  Receive Date: 20140929
  Receipt Date: 20141029
  Transmission Date: 20150528
  Serious: Yes (Hospitalization)
  Sender: FDA-Public Use
  Company Number: JP-ABBVIE-14P-087-1251684-00

PATIENT
  Age: 72 Year
  Sex: Female
  Weight: 54 kg

DRUGS (10)
  1. FOLIC ACID. [Concomitant]
     Active Substance: FOLIC ACID
     Indication: PROPHYLAXIS
     Route: 048
     Dates: start: 20130525, end: 20140615
  2. BROTIZOLAM [Concomitant]
     Active Substance: BROTIZOLAM
     Indication: INSOMNIA
     Route: 048
     Dates: start: 20130525, end: 20140615
  3. HUMIRA [Suspect]
     Active Substance: ADALIMUMAB
     Indication: RHEUMATOID ARTHRITIS
     Route: 058
     Dates: start: 20130525, end: 20140615
  4. CELECOXIB. [Concomitant]
     Active Substance: CELECOXIB
     Indication: RHEUMATOID ARTHRITIS
     Dates: start: 20130525, end: 20140615
  5. REBAMIPIDE [Concomitant]
     Active Substance: REBAMIPIDE
     Indication: GASTRITIS PROPHYLAXIS
     Route: 048
     Dates: start: 20130525, end: 20140615
  6. METOLATE [Suspect]
     Active Substance: METHOTREXATE
     Route: 065
     Dates: start: 20130706, end: 20130719
  7. METOLATE [Suspect]
     Active Substance: METHOTREXATE
     Indication: RHEUMATOID ARTHRITIS
     Route: 048
     Dates: start: 20130525, end: 20130607
  8. METOLATE [Suspect]
     Active Substance: METHOTREXATE
     Route: 065
     Dates: start: 20130720, end: 20140615
  9. FOLIC ACID. [Concomitant]
     Active Substance: FOLIC ACID
     Indication: ADVERSE DRUG REACTION
  10. METOLATE [Suspect]
     Active Substance: METHOTREXATE
     Route: 065
     Dates: start: 20130608, end: 20130705

REACTIONS (5)
  - Nasopharyngitis [Unknown]
  - Interstitial lung disease [Recovered/Resolved]
  - Blood lactate dehydrogenase increased [Unknown]
  - Lymphocyte stimulation test positive [Unknown]
  - Lymphadenopathy mediastinal [Recovering/Resolving]

NARRATIVE: CASE EVENT DATE: 20140616
